FAERS Safety Report 5959153-6 (Version None)
Quarter: 2008Q4

REPORT INFORMATION
  Report Type: 
  Country: None (occurrence: None)
  Receive Date: 20081120
  Receipt Date: 20080922
  Transmission Date: 20090506
  Serious: No
  Sender: FDA-Public Use
  Company Number: A0717344A

PATIENT
  Age: 55 Year
  Sex: Female

DRUGS (15)
  1. WELLBUTRIN SR [Suspect]
     Indication: DEPRESSION
     Dosage: 150MG TWICE PER DAY
     Route: 048
     Dates: start: 20080101
  2. WELLBUTRIN XL [Suspect]
     Indication: DEPRESSION
     Dosage: 300MG PER DAY
     Route: 048
     Dates: start: 20071001
  3. ADDERALL 10 [Suspect]
  4. ASPIRIN [Concomitant]
  5. EFFEXOR [Concomitant]
  6. TOPAMAX [Concomitant]
  7. TEGRETOL [Concomitant]
  8. KLONOPIN [Concomitant]
  9. TOPAMAX [Concomitant]
  10. KLONOPIN [Concomitant]
  11. EFFEXOR [Concomitant]
  12. TRAZODONE HCL [Concomitant]
  13. CYTOMEL [Concomitant]
  14. ACETYLSALICYLIC ACID SRT [Concomitant]
  15. DEXTROAMPHETAMINE [Concomitant]

REACTIONS (5)
  - ABDOMINAL PAIN UPPER [None]
  - ALOPECIA [None]
  - FATIGUE [None]
  - PRODUCT QUALITY ISSUE [None]
  - TREMOR [None]
